FAERS Safety Report 6643116-1 (Version None)
Quarter: 2010Q1

REPORT INFORMATION
  Report Type: 
  Country: None (occurrence: None)
  Receive Date: 20100319
  Receipt Date: 20100308
  Transmission Date: 20100710
  Serious: Yes (Other)
  Sender: FDA-Public Use
  Company Number: PHHY2010DE14132

PATIENT
  Age: 42 Year
  Sex: Male

DRUGS (6)
  1. BASILIXIMAB [Suspect]
     Indication: RENAL AND PANCREAS TRANSPLANT
     Dosage: CUMULATIVE DOSE 40 MG
  2. TACROLIMUS [Suspect]
     Indication: RENAL AND PANCREAS TRANSPLANT
     Dosage: UNK
  3. TACROLIMUS [Suspect]
     Dosage: 2 MG, BID
  4. MYCOPHENOLATE MOFETIL [Suspect]
     Indication: RENAL AND PANCREAS TRANSPLANT
  5. METHYLPREDNISOLONE [Suspect]
     Indication: RENAL AND PANCREAS TRANSPLANT
     Dosage: 4 MG, QD
  6. IFOSFAMIDE [Concomitant]

REACTIONS (12)
  - ANISOCYTOSIS [None]
  - COLECTOMY [None]
  - INTESTINAL PERFORATION [None]
  - LUNG OPERATION [None]
  - LYMPHADENECTOMY [None]
  - MEDIASTINAL MASS [None]
  - NECROSIS [None]
  - PERICARDIAL EXCISION [None]
  - PERITONITIS [None]
  - PLEURAL EFFUSION [None]
  - THYMECTOMY [None]
  - THYMIC CANCER METASTATIC [None]
